FAERS Safety Report 7103821-X (Version None)
Quarter: 2010Q4

REPORT INFORMATION
  Report Type: 
  Country: None (occurrence: None)
  Receive Date: 20101115
  Receipt Date: 20101102
  Transmission Date: 20110411
  Serious: Yes (Other)
  Sender: FDA-Public Use
  Company Number: GB-ELI_LILLY_AND_COMPANY-GB201011000442

PATIENT
  Age: 12 Year
  Sex: Female
  Weight: 35 kg

DRUGS (3)
  1. ATOMOXETINE HCL [Suspect]
     Indication: ATTENTION DEFICIT/HYPERACTIVITY DISORDER
     Dosage: 1 D/F, UNK
     Route: 048
     Dates: start: 20080108, end: 20100309
  2. METHYLPHENIDATE HCL [Concomitant]
     Indication: ATTENTION DEFICIT/HYPERACTIVITY DISORDER
     Dosage: 1 D/F, UNK
     Route: 048
     Dates: start: 20080314, end: 20091109
  3. MELATONIN [Concomitant]
     Dosage: 1 D/F, UNK

REACTIONS (3)
  - HYPERTENSION [None]
  - TACHYCARDIA [None]
  - WEIGHT DECREASED [None]
